FAERS Safety Report 18203626 (Version 1)
Quarter: 2020Q3

REPORT INFORMATION
  Report Type: Spontaneous
  Country: CH (occurrence: CH)
  Receive Date: 20200827
  Receipt Date: 20200827
  Transmission Date: 20201103
  Serious: Yes (Hospitalization, Other)
  Sender: FDA-Public Use
  Company Number: CH-PFIZER INC-2020327084

PATIENT
  Age: 68 Year
  Sex: Male

DRUGS (11)
  1. OLANZAPIN [Suspect]
     Active Substance: OLANZAPINE
     Dosage: UNK
  2. TEMESTA (LORAZEPAM) [Suspect]
     Active Substance: LORAZEPAM
     Dosage: UNK, AT NIGHT
  3. NICOTINELL [NICOTINE BITARTRATE] [Concomitant]
     Dosage: UNK
  4. RISPERIDONE. [Suspect]
     Active Substance: RISPERIDONE
     Dosage: UNK
  5. QUETIAPINE FUMARATE. [Suspect]
     Active Substance: QUETIAPINE FUMARATE
     Dosage: UNK
  6. PROPOFOL. [Suspect]
     Active Substance: PROPOFOL
     Dosage: UNK, AT NIGHT
  7. MORPHINE HYDROCHLORIDE [Suspect]
     Active Substance: MORPHINE HYDROCHLORIDE
     Dosage: UNK
  8. ELIQUIS [Concomitant]
     Active Substance: APIXABAN
     Dosage: UNK
  9. DEXDOR [Suspect]
     Active Substance: DEXMEDETOMIDINE HYDROCHLORIDE
     Dosage: UNK, AT NIGHT
  10. ATORVASTATIN [Concomitant]
     Active Substance: ATORVASTATIN
     Dosage: UNK
  11. DIPIPERON [Suspect]
     Active Substance: PIPAMPERONE
     Dosage: UNK

REACTIONS (2)
  - Anticholinergic syndrome [Unknown]
  - Delirium [Unknown]
